FAERS Safety Report 16396734 (Version 1)
Quarter: 2019Q2

REPORT INFORMATION
  Report Type: Spontaneous
  Country: FR (occurrence: FR)
  Receive Date: 20190606
  Receipt Date: 20190606
  Transmission Date: 20190711
  Serious: Yes (Other)
  Sender: FDA-Public Use
  Company Number: FR-JNJFOC-20190533170

PATIENT
  Sex: Male

DRUGS (1)
  1. KETODERM (KETOCONAZOLE) [Suspect]
     Active Substance: KETOCONAZOLE
     Indication: ECZEMA

REACTIONS (6)
  - Incorrect product administration duration [Unknown]
  - Cerebrovascular accident [Unknown]
  - Product use in unapproved indication [Unknown]
  - Treatment noncompliance [Unknown]
  - Off label use [Unknown]
  - Eczema [Unknown]
